FAERS Safety Report 6774900-1 (Version None)
Quarter: 2010Q2

REPORT INFORMATION
  Report Type: 
  Country: None (occurrence: None)
  Receive Date: 20100616
  Receipt Date: 20100616
  Transmission Date: 20101027
  Serious: Yes (Life-Threatening)
  Sender: FDA-Public Use
  Company Number: None

PATIENT
  Age: 21 Year
  Sex: Male
  Weight: 77.1115 kg

DRUGS (1)
  1. CELEXA [Suspect]
     Indication: GENERALISED ANXIETY DISORDER
     Dosage: 20-60 MG ONCE DAILY PO
     Route: 048
     Dates: start: 20070815, end: 20080615

REACTIONS (8)
  - AKATHISIA [None]
  - CERVICAL VERTEBRAL FRACTURE [None]
  - DELUSION [None]
  - HEAD INJURY [None]
  - PAIN [None]
  - PARAESTHESIA [None]
  - SEXUAL DYSFUNCTION [None]
  - TARDIVE DYSKINESIA [None]
